FAERS Safety Report 12890686 (Version 1)
Quarter: 2016Q4

REPORT INFORMATION
  Report Type: Spontaneous
  Country: US (occurrence: US)
  Receive Date: 20161027
  Receipt Date: 20161027
  Transmission Date: 20170207
  Serious: No
  Sender: FDA-Public Use
  Company Number: US-JAZZ-2016-US-015939

PATIENT
  Sex: Female

DRUGS (29)
  1. CINNAMON. [Concomitant]
     Active Substance: CINNAMON
  2. POTASSIUM CITRATE. [Concomitant]
     Active Substance: POTASSIUM CITRATE
  3. ADDERALL [Concomitant]
     Active Substance: AMPHETAMINE ASPARTATE\AMPHETAMINE SULFATE\DEXTROAMPHETAMINE SACCHARATE\DEXTROAMPHETAMINE SULFATE
  4. CEVIMELINE HYDROCHLORIDE. [Concomitant]
     Active Substance: CEVIMELINE HYDROCHLORIDE
  5. VITAMIN D [Concomitant]
     Active Substance: CHOLECALCIFEROL
  6. ETODOLAC. [Concomitant]
     Active Substance: ETODOLAC
  7. PROBIOTIC [Concomitant]
     Active Substance: PROBIOTICS NOS
  8. SIMVASTATIN. [Concomitant]
     Active Substance: SIMVASTATIN
  9. AMPHETAMINE [Concomitant]
     Active Substance: AMPHETAMINE
  10. FISH OIL [Concomitant]
     Active Substance: FISH OIL
  11. VENLAFAXINE HCL [Concomitant]
     Active Substance: VENLAFAXINE HYDROCHLORIDE
  12. XYREM [Suspect]
     Active Substance: SODIUM OXYBATE
     Indication: CATAPLEXY
     Dosage: 4.5 G, BID
     Route: 048
     Dates: start: 201301
  13. VITAMIN D3 [Concomitant]
     Active Substance: CHOLECALCIFEROL
  14. BUPROPION HCL [Concomitant]
     Active Substance: BUPROPION HYDROCHLORIDE
  15. TIZANIDINE HCL [Concomitant]
     Active Substance: TIZANIDINE HYDROCHLORIDE
  16. METFORMIN [Concomitant]
     Active Substance: METFORMIN HYDROCHLORIDE
  17. NATURE-THROID [Concomitant]
     Active Substance: THYROID, PORCINE
  18. PIOGLITAZONE HCL [Concomitant]
     Active Substance: PIOGLITAZONE
  19. LISINOPRIL. [Concomitant]
     Active Substance: LISINOPRIL
  20. XANAX [Concomitant]
     Active Substance: ALPRAZOLAM
  21. MAGNESIUM CITRATE. [Concomitant]
     Active Substance: MAGNESIUM CITRATE
  22. FAMOTIDINE. [Concomitant]
     Active Substance: FAMOTIDINE
  23. XYREM [Suspect]
     Active Substance: SODIUM OXYBATE
     Indication: NARCOLEPSY
     Dosage: 3 G, BID
     Route: 048
     Dates: start: 201212, end: 201301
  24. LEVAQUIN [Concomitant]
     Active Substance: LEVOFLOXACIN
  25. SYNTHROID [Concomitant]
     Active Substance: LEVOTHYROXINE SODIUM
  26. BIOTIN [Concomitant]
     Active Substance: BIOTIN
  27. OMEPRAZOLE. [Concomitant]
     Active Substance: OMEPRAZOLE
  28. ESTRADIOL. [Concomitant]
     Active Substance: ESTRADIOL
  29. HYDROCODONE/ACETAMINOPHEN [Concomitant]
     Active Substance: ACETAMINOPHEN\HYDROCODONE

REACTIONS (1)
  - Osteoarthritis [Not Recovered/Not Resolved]
